FAERS Safety Report 14245156 (Version 1)
Quarter: 2017Q4

REPORT INFORMATION
  Report Type: Spontaneous
  Country: PT (occurrence: PT)
  Receive Date: 20171202
  Receipt Date: 20171202
  Transmission Date: 20180321
  Serious: Yes (Other)
  Sender: FDA-Public Use
  Company Number: PT-AMGEN-PRTSP2017178561

PATIENT
  Age: 80 Year
  Sex: Male

DRUGS (5)
  1. IRINOTECAN [Concomitant]
     Active Substance: IRINOTECAN
     Indication: COLON CANCER
     Dosage: 248 MG, EVERY 15 DAYS
     Route: 042
     Dates: start: 20170712, end: 20170712
  2. FLUOROURACIL. [Concomitant]
     Active Substance: FLUOROURACIL
     Dosage: 3312 MG, UNK
     Route: 041
  3. LEVOFOLINATE SODIUM [Concomitant]
     Active Substance: LEVOLEUCOVORIN DISODIUM
     Indication: COLON CANCER
     Dosage: 276 MG, EVERY 15 DAYS
     Route: 042
     Dates: start: 20170712, end: 20170712
  4. VECTIBIX [Suspect]
     Active Substance: PANITUMUMAB
     Indication: COLON CANCER
     Dosage: 333 MG, EVERY 15 DAYS
     Route: 042
     Dates: start: 20170712, end: 20170712
  5. FLUOROURACIL. [Concomitant]
     Active Substance: FLUOROURACIL
     Indication: COLON CANCER
     Dosage: 552 MG, UNK
     Route: 040

REACTIONS (3)
  - Growth of eyelashes [Recovered/Resolved]
  - Dermatitis acneiform [Recovering/Resolving]
  - Ectropion [Recovered/Resolved]

NARRATIVE: CASE EVENT DATE: 20170712
